FAERS Safety Report 5067949-0 (Version None)
Quarter: 2006Q3

REPORT INFORMATION
  Report Type: 
  Country: None (occurrence: None)
  Receive Date: 20060717
  Receipt Date: 20060228
  Transmission Date: 20061208
  Serious: Yes (Hospitalization)
  Sender: FDA-Public Use
  Company Number: 2006000475

PATIENT
  Age: 62 Year
  Sex: Male
  Weight: 33.793 kg

DRUGS (13)
  1. TARCEVA [Suspect]
     Indication: NON-SMALL CELL LUNG CANCER
     Dosage: 150 MG (QD), ORAL
     Route: 048
     Dates: start: 20060104, end: 20060111
  2. CARBOPLATIN [Concomitant]
  3. TAXOL [Concomitant]
  4. GEMCITABINE [Concomitant]
  5. CISPLATIN [Concomitant]
  6. COUMADIN [Concomitant]
  7. ALBUTEROL [Concomitant]
  8. FLUNISOLIDE (FLUNISOLIDE) [Concomitant]
  9. FORMETEROL [Concomitant]
  10. ATROVENT [Concomitant]
  11. PANTOPRAZOLE SODIUM [Concomitant]
  12. SIMVASTATIN [Concomitant]
  13. NEUPOGEN [Concomitant]

REACTIONS (6)
  - CHILLS [None]
  - DYSPNOEA [None]
  - HYPERHIDROSIS [None]
  - PRURITUS [None]
  - PYREXIA [None]
  - RASH [None]
